FAERS Safety Report 8207706-7 (Version None)
Quarter: 2012Q1

REPORT INFORMATION
  Report Type: 
  Country: None (occurrence: None)
  Receive Date: 20120314
  Receipt Date: 20110216
  Transmission Date: 20120608
  Serious: No
  Sender: FDA-Public Use
  Company Number: US-MYLANLABS-2011S1003524

PATIENT
  Sex: Male

DRUGS (6)
  1. FOSAMAX [Concomitant]
  2. TERAZOSIN HYDROCHLORIDE [Suspect]
     Indication: BENIGN PROSTATIC HYPERPLASIA
     Route: 048
     Dates: end: 20110131
  3. ATENOLOL [Concomitant]
  4. ISOSORBIDE DINITRATE [Concomitant]
  5. DOXAZOSIN MESYLATE [Suspect]
     Indication: BENIGN PROSTATIC HYPERPLASIA
     Route: 048
     Dates: start: 20110131
  6. LEVOTHYROXINE SODIUM [Concomitant]

REACTIONS (1)
  - DYSURIA [None]
